FAERS Safety Report 4928233-6 (Version None)
Quarter: 2006Q1

REPORT INFORMATION
  Report Type: 
  Country: None (occurrence: None)
  Receive Date: 20060223
  Receipt Date: 20060131
  Transmission Date: 20060701
  Serious: Yes (Hospitalization)
  Sender: FDA-Public Use
  Company Number: AU200602000850

PATIENT
  Age: 14 Year
  Sex: Male
  Weight: 56.2 kg

DRUGS (6)
  1. ATOMOXETINE HYDROCHLORIDE [Suspect]
     Dosage: 50 MG 2/D ORAL
     Route: 048
     Dates: start: 20020109
  2. HUMULIN NPH (HUMAN INSULIN (RDNA ORIGIN) [Concomitant]
  3. NOVORAPID/DEN/(INSULIN ASPART) [Concomitant]
  4. ACETAMINOPHEN [Concomitant]
  5. IBUPROFEN [Concomitant]
  6. DISPRIN (ACETYLSALICYLIC ACID) [Concomitant]

REACTIONS (1)
  - KETOACIDOSIS [None]
